FAERS Safety Report 8504812 (Version 2)
Quarter: 2012Q4

REPORT INFORMATION
  Report Type: Report from Study
  Country: JP (occurrence: JP)
  Receive Date: 20120411
  Receipt Date: 20120914
  Transmission Date: 20130627
  Serious: Yes (Other)
  Sender: FDA-Public Use
  Company Number: JP-PFIZER INC-2012087098

PATIENT
  Age: 52 Year
  Sex: Female
  Weight: 60 kg

DRUGS (5)
  1. ATORVASTATIN CALCIUM [Suspect]
     Indication: HYPERCHOLESTEROLAEMIA
     Dosage: 5 mg, 1x/day
     Route: 048
     Dates: start: 20110725
  2. ALOGLIPTIN [Suspect]
     Indication: DIABETES MELLITUS
     Dosage: 25 mg, UNK
     Route: 048
     Dates: start: 20110725
  3. NORVASC [Concomitant]
     Indication: HYPERTENSION
     Dosage: UNK
     Route: 048
     Dates: start: 20110725, end: 20120116
  4. BLOPRESS [Concomitant]
     Indication: HYPERTENSION
     Dosage: UNK
     Route: 048
     Dates: start: 20110809, end: 20120116
  5. UNISIA [Concomitant]
     Indication: HYPERTENSION
     Dosage: UNK
     Dates: start: 20120117

REACTIONS (1)
  - Diabetes mellitus [Recovering/Resolving]
